FAERS Safety Report 10187640 (Version 1)
Quarter: 2014Q2

REPORT INFORMATION
  Report Type: Spontaneous
  Country: US (occurrence: US)
  Receive Date: 20140522
  Receipt Date: 20140522
  Transmission Date: 20141212
  Serious: No
  Sender: FDA-Public Use
  Company Number: US-SANOFI-AVENTIS-2013SA077268

PATIENT
  Age: 59 Year
  Sex: Female

DRUGS (3)
  1. LANTUS SOLOSTAR [Suspect]
     Indication: TYPE 2 DIABETES MELLITUS
     Route: 058
     Dates: start: 2007
  2. SOLOSTAR [Concomitant]
     Dates: start: 2007
  3. NOVOLOG [Concomitant]

REACTIONS (4)
  - Dyspnoea [Unknown]
  - Muscular weakness [Unknown]
  - Feeling abnormal [Unknown]
  - Dysphagia [Unknown]
